FAERS Safety Report 23970112 (Version 1)
Quarter: 2024Q2

REPORT INFORMATION
  Report Type: Spontaneous
  Country: US (occurrence: US)
  Receive Date: 20240613
  Receipt Date: 20240613
  Transmission Date: 20240715
  Serious: No
  Sender: FDA-Public Use
  Company Number: US-TEVA-VS-3205958

PATIENT

DRUGS (1)
  1. DEXTROAMPHET SACCHARAT, AMPHET ASPARTATE, DEXTROAMPHET SULFATE AND AMP [Suspect]
     Active Substance: AMPHETAMINE ASPARTATE\AMPHETAMINE ASPARTATE MONOHYDRATE\AMPHETAMINE SULFATE\DEXTROAMPHETAMINE SACCHA
     Indication: Attention deficit hyperactivity disorder
     Route: 065
     Dates: start: 20240501

REACTIONS (10)
  - Depression [Unknown]
  - Anxiety [Unknown]
  - Drug effect less than expected [Unknown]
  - Brain fog [Unknown]
  - Malaise [Unknown]
  - Dizziness [Unknown]
  - Lethargy [Unknown]
  - Nausea [Unknown]
  - Thinking abnormal [Unknown]
  - Drug ineffective [Unknown]
